FAERS Safety Report 9889043 (Version 1)
Quarter: 2014Q1

REPORT INFORMATION
  Report Type: Spontaneous
  Country: US (occurrence: None)
  Receive Date: 20140210
  Receipt Date: 20140210
  Transmission Date: 20141002
  Serious: Yes (Other)
  Sender: FDA-Public Use
  Company Number: None

PATIENT
  Age: 26 Year
  Sex: Male
  Weight: 88.45 kg

DRUGS (1)
  1. GABAPENTIN [Suspect]
     Indication: NEURALGIA
     Dosage: TAKEN BY MOUTH
     Dates: start: 20140114, end: 20140209

REACTIONS (7)
  - Feeling abnormal [None]
  - Blood pressure increased [None]
  - Chest pain [None]
  - Headache [None]
  - Hypoaesthesia [None]
  - Derealisation [None]
  - Bradyphrenia [None]
